FAERS Safety Report 9961803 (Version 1)
Quarter: 2014Q1

REPORT INFORMATION
  Report Type: Report from Study
  Country: US (occurrence: US)
  Receive Date: 20140305
  Receipt Date: 20140305
  Transmission Date: 20141002
  Serious: No
  Sender: FDA-Public Use
  Company Number: US-ABBVIE-13P-163-1113461-00

PATIENT
  Age: 42 Year
  Sex: Female

DRUGS (8)
  1. HUMIRA [Suspect]
     Indication: CROHN^S DISEASE
     Dates: start: 20130531
  2. MERCAPTOPURINE [Concomitant]
     Indication: CROHN^S DISEASE
  3. FOLIC ACID [Concomitant]
     Indication: CROHN^S DISEASE
     Dosage: DAILY
  4. PRILOSEC [Concomitant]
     Indication: GASTROOESOPHAGEAL REFLUX DISEASE
  5. LEXAPRO [Concomitant]
     Indication: DEPRESSION
  6. MVI [Concomitant]
     Indication: VITAMIN SUPPLEMENTATION
  7. VITAMIN B COMPLEX [Concomitant]
     Indication: VITAMIN SUPPLEMENTATION
  8. STEROIDS [Concomitant]
     Indication: PRODUCT USED FOR UNKNOWN INDICATION

REACTIONS (3)
  - Sluggishness [Not Recovered/Not Resolved]
  - Fatigue [Not Recovered/Not Resolved]
  - Stress [Not Recovered/Not Resolved]
